FAERS Safety Report 12471949 (Version 1)
Quarter: 2016Q2

REPORT INFORMATION
  Report Type: Spontaneous
  Country: US (occurrence: None)
  Receive Date: 20160615
  Receipt Date: 20160615
  Transmission Date: 20160815
  Serious: No
  Sender: FDA-Public Use
  Company Number: None

PATIENT
  Age: 61 Year
  Sex: Female

DRUGS (1)
  1. HARVONI [Suspect]
     Active Substance: LEDIPASVIR\SOFOSBUVIR

REACTIONS (5)
  - Diarrhoea [None]
  - Pneumonia [None]
  - Vomiting [None]
  - No therapeutic response [None]
  - Blood potassium decreased [None]

NARRATIVE: CASE EVENT DATE: 20160614
